FAERS Safety Report 15550114 (Version 6)
Quarter: 2019Q1

REPORT INFORMATION
  Report Type: Spontaneous
  Country: FR (occurrence: FR)
  Receive Date: 20181025
  Receipt Date: 20190206
  Transmission Date: 20190417
  Serious: Yes (Life-Threatening, Hospitalization, Other)
  Sender: FDA-Public Use
  Company Number: FR-AUROBINDO-AUR-APL-2018-051427

PATIENT

DRUGS (15)
  1. SPIRONOLACTONE. [Suspect]
     Active Substance: SPIRONOLACTONE
     Indication: RENAL FAILURE
     Dosage: 50 MILLIGRAM, ONCE A DAY
  2. ENALAPRIL 20 MG TABLET [Suspect]
     Active Substance: ENALAPRIL
     Indication: MYOCARDIAL ISCHAEMIA
     Dosage: 20 MILLIGRAM, ONCE A DAY
     Route: 065
  3. ENALAPRIL 20 MG TABLET [Suspect]
     Active Substance: ENALAPRIL
     Indication: HYPERTENSION
  4. BISOPROLOL [Suspect]
     Active Substance: BISOPROLOL
     Indication: HYPERTENSION
  5. LERCANIDIPINE [Concomitant]
     Active Substance: LERCANIDIPINE
     Indication: MYOCARDIAL ISCHAEMIA
  6. BISOPROLOL [Suspect]
     Active Substance: BISOPROLOL
     Indication: CARDIAC VALVE DISEASE
     Dosage: 10 MILLIGRAM, ONCE A DAY
     Route: 065
  7. LERCANIDIPINE [Concomitant]
     Active Substance: LERCANIDIPINE
     Indication: CARDIAC VALVE DISEASE
  8. ACETYLSALICYLIC ACID [Concomitant]
     Active Substance: ASPIRIN
     Indication: MYOCARDIAL ISCHAEMIA
  9. SEVOFLURANE. [Suspect]
     Active Substance: SEVOFLURANE
     Indication: GENERAL ANAESTHESIA
     Dosage: UNK
     Route: 065
  10. REMIFENTANIL [Concomitant]
     Active Substance: REMIFENTANIL
     Indication: GENERAL ANAESTHESIA
     Dosage: UNK
     Route: 065
  11. LERCANIDIPINE [Concomitant]
     Active Substance: LERCANIDIPINE
     Indication: HYPERTENSION
     Dosage: 10 MILLIGRAM, ONCE A DAY
     Route: 065
  12. BISOPROLOL [Suspect]
     Active Substance: BISOPROLOL
     Indication: MYOCARDIAL ISCHAEMIA
  13. ACETYLSALICYLIC ACID [Concomitant]
     Active Substance: ASPIRIN
     Indication: HYPERTENSION
     Dosage: 75 MILLIGRAM, ONCE A DAY
     Route: 065
  14. ENALAPRIL 20 MG TABLET [Suspect]
     Active Substance: ENALAPRIL
     Indication: CARDIAC VALVE DISEASE
  15. ACETYLSALICYLIC ACID [Concomitant]
     Active Substance: ASPIRIN
     Indication: CARDIAC VALVE DISEASE

REACTIONS (3)
  - Heart rate decreased [Unknown]
  - Cardiac arrest [Recovered/Resolved]
  - Hyperkalaemia [Recovered/Resolved]
